FAERS Safety Report 8489172-X (Version None)
Quarter: 2012Q3

REPORT INFORMATION
  Report Type: 
  Country: None (occurrence: None)
  Receive Date: 20120705
  Receipt Date: 20120703
  Transmission Date: 20120928
  Serious: Yes (Death, Hospitalization)
  Sender: FDA-Public Use
  Company Number: DE-ROCHE-1040030

PATIENT
  Age: 61 Year
  Sex: Female

DRUGS (6)
  1. CITALOPRAM HYDROBROMIDE [Concomitant]
     Dates: start: 20090101
  2. DIPYRONE TAB [Suspect]
     Indication: ARTHRALGIA
     Dosage: MIN 20 MAX DOSE 60
     Route: 065
     Dates: start: 20120120, end: 20120212
  3. ETORICOXIB [Concomitant]
     Dates: start: 20120120
  4. LEVOTHYROXINE SODIUM [Concomitant]
     Dates: start: 20000101
  5. KALIUMIODID [Concomitant]
     Dates: start: 20000101
  6. VEMURAFENIB [Suspect]
     Indication: MALIGNANT MELANOMA
     Route: 048
     Dates: start: 20111223, end: 20120213

REACTIONS (2)
  - PNEUMONIA [None]
  - LEUKOPENIA [None]
